FAERS Safety Report 9675658 (Version 1)
Quarter: 2013Q4

REPORT INFORMATION
  Report Type: Spontaneous
  Country: FR (occurrence: FR)
  Receive Date: 20131107
  Receipt Date: 20131107
  Transmission Date: 20140711
  Serious: Yes (Hospitalization, Other)
  Sender: FDA-Public Use
  Company Number: FR-PFIZER INC-2013316316

PATIENT
  Age: 27 Year
  Sex: Male

DRUGS (11)
  1. VANCOMYCIN HCL [Suspect]
     Indication: ENDOCARDITIS
     Dosage: UNK
     Route: 042
     Dates: start: 20130713, end: 20130807
  2. VANCOMYCIN HCL [Suspect]
     Dosage: UNK
     Route: 042
     Dates: start: 201308, end: 20130821
  3. FORTUM [Suspect]
     Indication: DEVICE RELATED INFECTION
     Dosage: UNK
     Route: 065
     Dates: start: 20130731, end: 20130801
  4. GENTAMICIN SULFATE [Suspect]
     Indication: ENDOCARDITIS
     Dosage: UNK
     Route: 065
     Dates: start: 20130713, end: 20130807
  5. GENTAMICIN SULFATE [Suspect]
     Dosage: UNK
     Route: 065
     Dates: start: 201308, end: 20130821
  6. TAVANIC [Suspect]
     Indication: DEVICE RELATED INFECTION
     Dosage: UNK
     Route: 048
     Dates: start: 20130801, end: 20130808
  7. PYOSTACINE [Suspect]
     Indication: ENDOCARDITIS
     Dosage: UNK
     Route: 048
     Dates: start: 20130807, end: 20130809
  8. PYOSTACINE [Suspect]
     Dosage: UNK
     Route: 048
     Dates: start: 201308, end: 20130821
  9. RIMACTAN [Suspect]
     Indication: ENDOCARDITIS
     Dosage: UNK
     Route: 048
     Dates: start: 20130807, end: 20130814
  10. RIMACTAN [Suspect]
     Dosage: UNK
     Route: 048
     Dates: start: 201308, end: 20130821
  11. DALACIN [Concomitant]
     Dosage: UNK
     Dates: start: 20130809, end: 20130821

REACTIONS (6)
  - Drug reaction with eosinophilia and systemic symptoms [Recovered/Resolved]
  - Mixed liver injury [Recovered/Resolved]
  - Lymphadenopathy [Recovered/Resolved]
  - Bone marrow disorder [Recovered/Resolved]
  - Pyrexia [Recovered/Resolved]
  - Urticaria [Recovered/Resolved]
